FAERS Safety Report 9905475 (Version 1)
Quarter: 2014Q1

REPORT INFORMATION
  Report Type: Spontaneous
  Country: IN (occurrence: IN)
  Receive Date: 20140218
  Receipt Date: 20140218
  Transmission Date: 20141002
  Serious: Yes (Death)
  Sender: FDA-Public Use
  Company Number: IN-ROCHE-1347885

PATIENT
  Age: 55 Year
  Sex: Female
  Weight: 81 kg

DRUGS (4)
  1. TRASTUZUMAB EMTANSINE [Suspect]
     Indication: BREAST CANCER METASTATIC
     Route: 042
     Dates: start: 20140103, end: 20140124
  2. DIAMOX [Concomitant]
     Indication: OEDEMA
     Route: 048
  3. SUCRALFATE [Concomitant]
     Indication: GASTRIC ULCER
     Route: 048
  4. GLYCEROL [Concomitant]
     Indication: CONSTIPATION
     Dosage: DOSE FORM = TEASPOONS (TSP).
     Route: 048

REACTIONS (1)
  - Cardio-respiratory arrest [Fatal]
